FAERS Safety Report 4744778-6 (Version None)
Quarter: 2005Q3

REPORT INFORMATION
  Report Type: 
  Country: None (occurrence: None)
  Receive Date: 20050812
  Receipt Date: 20050812
  Transmission Date: 20060218
  Serious: No
  Sender: FDA-Public Use
  Company Number: None

PATIENT
  Sex: Female
  Weight: 52.1637 kg

DRUGS (2)
  1. COGENTIN [Suspect]
     Indication: EXTRAPYRAMIDAL DISORDER
     Dosage: 2 MG BID ORAL
     Route: 048
     Dates: start: 20050626, end: 20050627
  2. REGLAN [Concomitant]

REACTIONS (1)
  - HALLUCINATION, AUDITORY [None]
